FAERS Safety Report 8207390-2 (Version None)
Quarter: 2012Q1

REPORT INFORMATION
  Report Type: 
  Country: None (occurrence: None)
  Receive Date: 20120314
  Receipt Date: 20120301
  Transmission Date: 20120608
  Serious: Yes (Hospitalization)
  Sender: FDA-Public Use
  Company Number: DE-AMGEN-DEUCT2012006995

PATIENT
  Age: 58 Year
  Sex: Male
  Weight: 92 kg

DRUGS (12)
  1. CANDESARTAN CILEXETIL [Concomitant]
     Indication: HYPERTENSION
     Dosage: 16 MG, 2X/DAY
     Dates: start: 20090101
  2. CORTISONE ACETATE [Concomitant]
     Indication: RHEUMATOID ARTHRITIS
     Dosage: 5 MG, 1X/DAY
  3. AMLODIPINE [Concomitant]
     Indication: HYPERTENSION
     Dosage: 10 MG, 2X/DAY
     Dates: start: 20090101
  4. FOSTER                             /06206901/ [Concomitant]
     Dosage: UNK, 2X/DAY
  5. TILIDINE [Concomitant]
     Dosage: UNK
  6. PANTOPRAZOLE [Concomitant]
     Dosage: 40 MG, 1X/DAY
  7. SPIRIVA [Concomitant]
     Dosage: UNK, 1X/DAY
  8. PREDNISOLONE [Concomitant]
     Indication: RHEUMATOID ARTHRITIS
     Dosage: 5 MG, 1X/DAY
     Dates: start: 20090101
  9. PREDNI-H-TABLINEN [Concomitant]
     Indication: RHEUMATOID ARTHRITIS
     Dosage: UNK
     Route: 048
  10. NALOXONE [Concomitant]
     Dosage: UNK
  11. LEKOVIT CA [Concomitant]
     Dosage: UNK, 1X/DAY
  12. ETANERCEPT [Suspect]
     Indication: RHEUMATOID ARTHRITIS
     Dosage: 50 MG, QWK
     Route: 058
     Dates: start: 20110618, end: 20111201

REACTIONS (1)
  - BLOOD PRESSURE INCREASED [None]
